FAERS Safety Report 18682878 (Version 1)
Quarter: 2020Q4

REPORT INFORMATION
  Report Type: Spontaneous
  Country: CN (occurrence: CN)
  Receive Date: 20201230
  Receipt Date: 20201230
  Transmission Date: 20210114
  Serious: Yes (Hospitalization, Other)
  Sender: FDA-Public Use
  Company Number: CN-PFIZER INC-2020514463

PATIENT
  Age: 29 Year
  Sex: Male
  Weight: 93 kg

DRUGS (6)
  1. SODIUM CHLORIDE. [Concomitant]
     Active Substance: SODIUM CHLORIDE
     Dosage: 250ML
  2. CYTOSAR [Suspect]
     Active Substance: CYTARABINE
     Indication: ACUTE LEUKAEMIA
     Dosage: 200 MG, 1X/DAY
     Route: 041
     Dates: start: 20201210, end: 20201210
  3. ENDOXAN [CYCLOPHOSPHAMIDE] [Suspect]
     Active Substance: CYCLOPHOSPHAMIDE
     Indication: ACUTE LEUKAEMIA
     Dosage: 1200 MG, 1X/DAY
     Route: 041
     Dates: start: 20201208, end: 20201208
  4. XI AI KE [Suspect]
     Active Substance: VINDESINE SULFATE
     Indication: ACUTE LEUKAEMIA
     Dosage: 4 MG, 1X/DAY
     Route: 041
     Dates: start: 20201208, end: 20201208
  5. METHOTREXATE. [Suspect]
     Active Substance: METHOTREXATE
     Indication: ACUTE LEUKAEMIA
     Dosage: 700 MG, 1X/DAY
     Route: 041
     Dates: start: 20201210, end: 20201210
  6. SODIUM CHLORIDE. [Concomitant]
     Active Substance: SODIUM CHLORIDE
     Dosage: 20ML

REACTIONS (1)
  - Myelosuppression [Recovering/Resolving]

NARRATIVE: CASE EVENT DATE: 20201214
